FAERS Safety Report 9347691 (Version 2)
Quarter: 2013Q3

REPORT INFORMATION
  Report Type: Report from Study
  Country: US (occurrence: US)
  Receive Date: 20130614
  Receipt Date: 20130708
  Transmission Date: 20140515
  Serious: Yes (Hospitalization)
  Sender: FDA-Public Use
  Company Number: US-PFIZER INC-2013175423

PATIENT
  Age: 72 Year
  Sex: Female
  Weight: 84 kg

DRUGS (3)
  1. CISPLATIN [Suspect]
     Indication: MESOTHELIOMA
     Dosage: 75 MG/M2, (1 IN 21 D) (DAILY DOSE) ROUTE: INTRAVENOUS INFUSION
     Route: 042
     Dates: start: 20100707, end: 20101027
  2. MORAB-009 [Suspect]
     Indication: MESOTHELIOMA
     Dosage: 5 MG/KG, (2 IN 21 D) (DAILY DOSE) ROUTE: INTRAVENOUS INFUSION
     Route: 042
     Dates: start: 20100707, end: 20111012
  3. PEMETREXED [Suspect]
     Indication: MESOTHELIOMA
     Dosage: 500 MG/M2, (1 IN 21 D) (DAILY DOSE) ROUTE: INTRAVENOUS INFUSION
     Route: 042
     Dates: start: 20100707, end: 20101027

REACTIONS (3)
  - Urosepsis [Recovered/Resolved]
  - Renal impairment [Recovered/Resolved]
  - Pyrexia [Recovered/Resolved]
